FAERS Safety Report 24231847 (Version 4)
Quarter: 2025Q3

REPORT INFORMATION
  Report Type: Spontaneous
  Country: EU (occurrence: EU)
  Receive Date: 20240821
  Receipt Date: 20250923
  Transmission Date: 20251020
  Serious: Yes (Other)
  Sender: AUROBINDO
  Company Number: EU-GERMAN-LIT/NLD/24/0011647

PATIENT
  Age: 52 Year
  Sex: Female

DRUGS (25)
  1. LENALIDOMIDE [Suspect]
     Active Substance: LENALIDOMIDE
     Indication: Plasma cell myeloma
     Route: 048
  2. LEVOCETIRIZINE [Suspect]
     Active Substance: LEVOCETIRIZINE
     Indication: Prophylaxis
     Route: 065
  3. LEVOCETIRIZINE [Suspect]
     Active Substance: LEVOCETIRIZINE
     Indication: Anaphylactic shock
  4. FAMOTIDINE [Suspect]
     Active Substance: FAMOTIDINE
     Indication: Prophylaxis
     Route: 065
  5. FAMOTIDINE [Suspect]
     Active Substance: FAMOTIDINE
     Indication: Anaphylactic shock
  6. MONTELUKAST [Suspect]
     Active Substance: MONTELUKAST
     Indication: Prophylaxis
     Route: 065
  7. MONTELUKAST [Suspect]
     Active Substance: MONTELUKAST
     Indication: Anaphylactic shock
  8. DEXAMETHASONE [Suspect]
     Active Substance: DEXAMETHASONE
     Indication: Plasma cell myeloma
     Route: 065
  9. DEXAMETHASONE [Suspect]
     Active Substance: DEXAMETHASONE
     Indication: Prophylaxis
     Route: 065
  10. DEXAMETHASONE [Suspect]
     Active Substance: DEXAMETHASONE
     Indication: Anaphylactic shock
  11. CARFILZOMIB [Suspect]
     Active Substance: CARFILZOMIB
     Indication: Plasma cell myeloma
     Route: 042
  12. POMALIDOMIDE [Suspect]
     Active Substance: POMALIDOMIDE
     Indication: Plasma cell myeloma
     Route: 065
  13. ISATUXIMAB [Concomitant]
     Active Substance: ISATUXIMAB
     Indication: Plasma cell myeloma
     Route: 065
  14. ISATUXIMAB [Concomitant]
     Active Substance: ISATUXIMAB
     Route: 065
  15. MELPHALAN [Concomitant]
     Active Substance: MELPHALAN
     Indication: Plasma cell myeloma
     Route: 042
  16. CLEMASTINE [Concomitant]
     Active Substance: CLEMASTINE
     Indication: Dyspnoea
     Route: 042
  17. CLEMASTINE [Concomitant]
     Active Substance: CLEMASTINE
     Indication: Cough
  18. CLEMASTINE [Concomitant]
     Active Substance: CLEMASTINE
     Indication: Nausea
  19. CLEMASTINE [Concomitant]
     Active Substance: CLEMASTINE
     Indication: Tachycardia
  20. CLEMASTINE [Concomitant]
     Active Substance: CLEMASTINE
     Indication: Flushing
  21. PREDNISOLONE [Concomitant]
     Active Substance: PREDNISOLONE
     Indication: Dyspnoea
     Route: 042
  22. PREDNISOLONE [Concomitant]
     Active Substance: PREDNISOLONE
     Indication: Cough
  23. PREDNISOLONE [Concomitant]
     Active Substance: PREDNISOLONE
     Indication: Nausea
  24. PREDNISOLONE [Concomitant]
     Active Substance: PREDNISOLONE
     Indication: Tachycardia
  25. PREDNISOLONE [Concomitant]
     Active Substance: PREDNISOLONE
     Indication: Flushing

REACTIONS (12)
  - Plasma cell myeloma refractory [Recovered/Resolved]
  - Anaphylactic shock [Recovered/Resolved]
  - Plasma cell myeloma [Recovered/Resolved]
  - Tachycardia [Recovered/Resolved]
  - Nasal obstruction [Recovered/Resolved]
  - Cough [Recovered/Resolved]
  - Erythema [Recovered/Resolved]
  - Nausea [Recovered/Resolved]
  - Dyspnoea [Recovered/Resolved]
  - Flushing [Recovered/Resolved]
  - Dizziness [Recovered/Resolved]
  - Drug ineffective [Unknown]
